FAERS Safety Report 5285527-5 (Version None)
Quarter: 2007Q1

REPORT INFORMATION
  Report Type: 
  Country: None (occurrence: None)
  Receive Date: 20070328
  Receipt Date: 20070314
  Transmission Date: 20070707
  Serious: Yes (Death)
  Sender: FDA-Public Use
  Company Number: A-NJ2007-14544

PATIENT
  Age: 54 Year
  Sex: Female
  Weight: 63.5 kg

DRUGS (5)
  1. VENTAVIS [Suspect]
     Indication: PULMONARY HYPERTENSION
     Dosage: 2.5 UG, 4XD, RESPIRATORY
     Route: 055
     Dates: start: 20060825, end: 20070302
  2. SILDENAFIL CITRATE [Concomitant]
  3. LASIX [Concomitant]
  4. K-TAB [Concomitant]
  5. IRON (IRON) [Concomitant]

REACTIONS (3)
  - SUDDEN DEATH [None]
  - TREATMENT NONCOMPLIANCE [None]
  - UPPER RESPIRATORY TRACT INFECTION [None]
